FAERS Safety Report 6188757-3 (Version None)
Quarter: 2009Q2

REPORT INFORMATION
  Report Type: 
  Country: None (occurrence: None)
  Receive Date: 20090511
  Receipt Date: 20090511
  Transmission Date: 20091009
  Serious: Yes (Death)
  Sender: FDA-Public Use
  Company Number: None

PATIENT
  Age: 58 Year
  Sex: Female
  Weight: 72.6 kg

DRUGS (5)
  1. CEFTRIAXONE [Suspect]
     Indication: EVIDENCE BASED TREATMENT
     Dosage: 1000 MG Q12H IV, ONE DOSE NOT COMPLETED
     Route: 042
  2. CEFTRIAXONE [Suspect]
     Indication: PNEUMONIA
     Dosage: 1000 MG Q12H IV, ONE DOSE NOT COMPLETED
     Route: 042
  3. SODIUM CHLORIDE 0.9% [Suspect]
     Dosage: 50 ML Q12H  IV DRIP
     Route: 041
  4. AZITHROMYCIN INJECTION [Concomitant]
  5. LEVOFLOXACIN INJECTION [Concomitant]

REACTIONS (6)
  - CYANOSIS [None]
  - LIVEDO RETICULARIS [None]
  - PULSE ABSENT [None]
  - RESPIRATORY ARREST [None]
  - RESPIRATORY DISORDER [None]
  - UNRESPONSIVE TO STIMULI [None]
